FAERS Safety Report 20743002 (Version 4)
Quarter: 2022Q3

REPORT INFORMATION
  Report Type: Report from Study
  Country: US (occurrence: US)
  Receive Date: 20220425
  Receipt Date: 20220716
  Transmission Date: 20221027
  Serious: No
  Sender: FDA-Public Use
  Company Number: US-NOVARTISTESTPH-NVSC2022US094293

PATIENT
  Age: 32 Year
  Sex: Female

DRUGS (1)
  1. KESIMPTA [Suspect]
     Active Substance: OFATUMUMAB
     Indication: Product used for unknown indication
     Dosage: UNK
     Route: 065
     Dates: start: 20220421

REACTIONS (5)
  - Chills [Recovering/Resolving]
  - Myalgia [Recovering/Resolving]
  - Headache [Recovering/Resolving]
  - Feeling cold [Recovering/Resolving]
  - Wrong technique in device usage process [Unknown]

NARRATIVE: CASE EVENT DATE: 20220421
